FAERS Safety Report 15627058 (Version 1)
Quarter: 2018Q4

REPORT INFORMATION
  Report Type: Spontaneous
  Country: US (occurrence: US)
  Receive Date: 20181116
  Receipt Date: 20181116
  Transmission Date: 20190205
  Serious: Yes (Other)
  Sender: FDA-Public Use
  Company Number: US-BIOVITRUM-2018US1404

PATIENT
  Age: 85 Year
  Sex: Female

DRUGS (1)
  1. KINERET [Suspect]
     Active Substance: ANAKINRA
     Route: 058
     Dates: start: 20181008

REACTIONS (3)
  - Injection site erythema [Unknown]
  - Off label use [Unknown]
  - Wound drainage [Unknown]

NARRATIVE: CASE EVENT DATE: 20181102
